FAERS Safety Report 24079418 (Version 2)
Quarter: 2025Q2

REPORT INFORMATION
  Report Type: Report from Study
  Country: ZA (occurrence: ZA)
  Receive Date: 20240711
  Receipt Date: 20250519
  Transmission Date: 20250717
  Serious: Yes (Hospitalization)
  Sender: ABBVIE
  Company Number: ZA-ABBOTT-2024A-1383802

PATIENT
  Age: 50 Year
  Sex: Male

DRUGS (13)
  1. FENOFIBRATE [Suspect]
     Active Substance: FENOFIBRATE
     Indication: Blood cholesterol
     Dosage: 200 MG TAKE ONE CAPSULE DAILY
     Route: 048
  2. WARFARIN [Concomitant]
     Active Substance: WARFARIN
     Indication: Anticoagulant therapy
     Route: 048
  3. WARFARIN [Concomitant]
     Active Substance: WARFARIN
     Indication: Anticoagulant therapy
     Route: 048
  4. BISOPROLOL FUMARATE [Concomitant]
     Active Substance: BISOPROLOL FUMARATE
     Indication: Hypertension
     Dosage: 5 MG TAKE ONE TABLET TWICE A DAY
     Route: 048
  5. METFORMIN HYDROCHLORIDE [Concomitant]
     Active Substance: METFORMIN HYDROCHLORIDE
     Indication: Diabetes mellitus
     Dosage: 1000 MG TAKE ONE TABLET TWICE A DAY
     Route: 048
  6. JARDIANCE [Concomitant]
     Active Substance: EMPAGLIFLOZIN
     Indication: Diabetes mellitus
     Dosage: 25 MG TAKE ONE TABLET DAILY?10 MG OF EMPAGLIFLOZIN
     Route: 048
  7. ECOTRIN [Concomitant]
     Active Substance: ASPIRIN
     Indication: Anticoagulant therapy
     Dosage: 81 MG TAKE ONE TABLET DAILY
     Route: 048
  8. SOLIQUA 100/33 [Concomitant]
     Active Substance: INSULIN GLARGINE\LIXISENATIDE
     Indication: Diabetes mellitus
     Dosage: 33/100 IU INJECT WITH 40 UNITS DAILY AS PRESCRIBED
     Route: 058
  9. ERGOCALCIFEROL [Concomitant]
     Active Substance: ERGOCALCIFEROL
     Indication: Product used for unknown indication
     Dosage: 50000 IU TAKE ONE TABLET WEEKLY?1.25 MG ERGOCALCIFEROL
     Route: 048
  10. CLOPIDOGREL BISULFATE [Concomitant]
     Active Substance: CLOPIDOGREL BISULFATE
     Indication: Anticoagulant therapy
     Dosage: 75 MG TAKE ONE TABLET DAILY
     Route: 048
  11. ROSUVASTATIN [Concomitant]
     Active Substance: ROSUVASTATIN
     Indication: Blood cholesterol
     Dosage: 40 MG TAKE ONE TABLET DAILY
     Route: 048
  12. PREGABALIN [Concomitant]
     Active Substance: PREGABALIN
     Indication: Epilepsy
     Dosage: 25 MG TAKE ONE CAPSULE DAILY
     Route: 048
  13. GLUCOPHAGE XR [Concomitant]
     Active Substance: METFORMIN HYDROCHLORIDE
     Indication: Diabetes mellitus
     Dosage: 1000 MG TAKE ONE TABLET TWICE A DAY?METFORMIN
     Route: 048

REACTIONS (1)
  - Cardiac disorder [Unknown]
